FAERS Safety Report 19154790 (Version 1)
Quarter: 2021Q2

REPORT INFORMATION
  Report Type: Spontaneous
  Country: US (occurrence: US)
  Receive Date: 20210419
  Receipt Date: 20210419
  Transmission Date: 20210717
  Serious: Yes (Other)
  Sender: FDA-Public Use
  Company Number: US-BAYER-2021-121106

PATIENT
  Sex: Female

DRUGS (1)
  1. MIRENA [Suspect]
     Active Substance: LEVONORGESTREL
     Dosage: 20 ?G PER DAY, CONTINUOUSLY
     Route: 015

REACTIONS (8)
  - Sensitive skin [None]
  - Genital haemorrhage [Recovered/Resolved]
  - Abdominal pain lower [None]
  - Insomnia [None]
  - Device dislocation [Recovered/Resolved]
  - Nausea [None]
  - Vision blurred [None]
  - Alopecia [None]
